FAERS Safety Report 11510523 (Version 2)
Quarter: 2015Q4

REPORT INFORMATION
  Report Type: Spontaneous
  Country: US (occurrence: US)
  Receive Date: 20150915
  Receipt Date: 20151013
  Transmission Date: 20160304
  Serious: No
  Sender: FDA-Public Use
  Company Number: US-JNJFOC-20150804213

PATIENT
  Age: 75 Year
  Sex: Female
  Weight: 72.58 kg

DRUGS (5)
  1. TURMERIC [Concomitant]
     Active Substance: TURMERIC
     Indication: NUTRITIONAL SUPPLEMENTATION
     Dosage: DAILY
     Route: 065
  2. GINGER. [Concomitant]
     Active Substance: GINGER
     Indication: ABDOMINAL DISCOMFORT
     Route: 065
  3. CELERY SEED EXTRACT [Concomitant]
     Indication: ABDOMINAL DISCOMFORT
     Route: 065
  4. ALL OTHER THERAPEUTIC PRODUCT [Concomitant]
     Active Substance: UNSPECIFIED INGREDIENT
     Indication: ABDOMINAL DISCOMFORT
     Route: 065
  5. TYLENOL 8 HR ARTHRITIS PAIN [Suspect]
     Active Substance: ACETAMINOPHEN
     Indication: ARTHRALGIA
     Route: 048

REACTIONS (1)
  - Abdominal discomfort [Recovered/Resolved]
